FAERS Safety Report 8074147-5 (Version None)
Quarter: 2012Q1

REPORT INFORMATION
  Report Type: 
  Country: None (occurrence: None)
  Receive Date: 20120126
  Receipt Date: 20120120
  Transmission Date: 20120608
  Serious: No
  Sender: FDA-Public Use
  Company Number: US-PFIZER INC-2012017273

PATIENT
  Sex: Female
  Weight: 63 kg

DRUGS (1)
  1. DILANTIN [Suspect]
     Indication: CONVULSION
     Dosage: 500 MG, 1X/DAY
     Route: 048

REACTIONS (2)
  - DRUG LEVEL INCREASED [None]
  - MALAISE [None]
